FAERS Safety Report 9167363 (Version 4)
Quarter: 2014Q2

REPORT INFORMATION
  Report Type: Spontaneous
  Country: GB (occurrence: GB)
  Receive Date: 20130318
  Receipt Date: 20140506
  Transmission Date: 20141212
  Serious: Yes (Other)
  Sender: FDA-Public Use
  Company Number: GB-JNJFOC-20130304958

PATIENT
  Age: 39 Year
  Sex: Female

DRUGS (7)
  1. PREZISTA [Suspect]
     Indication: PROPHYLAXIS AGAINST HIV INFECTION
     Dosage: 2ND TRIMESTER
     Route: 048
     Dates: start: 20121114, end: 20130115
  2. METFORMIN [Concomitant]
     Indication: TYPE 2 DIABETES MELLITUS
     Dosage: STILL TAKING , THROUGH PREGNANCY
     Route: 048
  3. OLANZAPINE [Concomitant]
     Indication: PSYCHOTIC DISORDER
     Dosage: 1ST, 2ND, 3RD TRIMESTER
     Route: 048
     Dates: end: 201304
  4. RALTEGRAVIR [Concomitant]
     Indication: PROPHYLAXIS AGAINST HIV INFECTION
     Dosage: 3RD TRIMESTER
     Route: 048
     Dates: start: 20130115
  5. RITONAVIR [Concomitant]
     Indication: PROPHYLAXIS AGAINST HIV INFECTION
     Dosage: 2ND TRIMESTER
     Route: 048
     Dates: start: 20121114, end: 20130115
  6. TRUVADA [Concomitant]
     Indication: PROPHYLAXIS AGAINST HIV INFECTION
     Dosage: 2ND AND 3RD TRIMESTER
     Route: 048
     Dates: start: 20121114
  7. SYNTOCINON [Concomitant]
     Dosage: DURING LABOUR
     Route: 042

REACTIONS (2)
  - Hepatic enzyme increased [Recovered/Resolved]
  - Exposure during pregnancy [Unknown]
